FAERS Safety Report 17362958 (Version 1)
Quarter: 2020Q1

REPORT INFORMATION
  Report Type: Report from Study
  Country: US (occurrence: US)
  Receive Date: 20200203
  Receipt Date: 20200203
  Transmission Date: 20200409
  Serious: Yes (Death)
  Sender: FDA-Public Use
  Company Number: US-PFIZER INC-2019462680

PATIENT
  Age: 63 Year
  Sex: Female

DRUGS (2)
  1. IBRANCE [Suspect]
     Active Substance: PALBOCICLIB
     Indication: BREAST CANCER FEMALE
     Dosage: 125 MG, CYCLIC (21 DAYS, THEN 7 DAYS OFF.)
     Route: 048
     Dates: start: 20191023, end: 20191120
  2. IBRANCE [Suspect]
     Active Substance: PALBOCICLIB
     Dosage: 75 MG, DAILY
     Route: 048
     Dates: start: 201912

REACTIONS (3)
  - Death [Fatal]
  - White blood cell count decreased [Recovering/Resolving]
  - Tooth abscess [Unknown]

NARRATIVE: CASE EVENT DATE: 2019
